FAERS Safety Report 7647148-6 (Version None)
Quarter: 2011Q3

REPORT INFORMATION
  Report Type: 
  Country: None (occurrence: None)
  Receive Date: 20110801
  Receipt Date: 20110415
  Transmission Date: 20111222
  Serious: Yes (Hospitalization, Other)
  Sender: FDA-Public Use
  Company Number: US-BAYER-200936262NA

PATIENT
  Age: 31 Year
  Sex: Female
  Weight: 90.7 kg

DRUGS (3)
  1. YAZ [Suspect]
     Indication: ORAL CONTRACEPTION
     Dosage: 1 DF (DAILY DOSE), QD, ORAL
     Route: 048
     Dates: start: 20080528, end: 20080802
  2. YASMIN [Suspect]
     Indication: PRODUCT USED FOR UNKNOWN INDICATION
     Dosage: 1 DF (DAILY DOSE), QD, ORAL
     Route: 048
  3. DEPO-PROVERA [Concomitant]
     Indication: CONTRACEPTION
     Dosage: UNK UNK, Q3MON
     Dates: start: 20000515, end: 20100507

REACTIONS (2)
  - PULMONARY EMBOLISM [None]
  - PAIN [None]
